FAERS Safety Report 5636016-7 (Version None)
Quarter: 2008Q1

REPORT INFORMATION
  Report Type: 
  Country: None (occurrence: None)
  Receive Date: 20080220
  Receipt Date: 20080220
  Transmission Date: 20080703
  Serious: Yes (Death)
  Sender: FDA-Public Use
  Company Number: None

PATIENT
  Age: 2 Week
  Sex: Female

DRUGS (1)
  1. INOMAX [Suspect]
     Dosage: ;CONT;INH
     Route: 055

REACTIONS (2)
  - BRADYCARDIA [None]
  - DEVICE FAILURE [None]
